FAERS Safety Report 4464561-9 (Version None)
Quarter: 2004Q3

REPORT INFORMATION
  Report Type: 
  Country: None (occurrence: None)
  Receive Date: 20040929
  Receipt Date: 20040913
  Transmission Date: 20050211
  Serious: Yes (Hospitalization)
  Sender: FDA-Public Use
  Company Number: 2004SP000198

PATIENT
  Age: 66 Year
  Sex: Female
  Weight: 62.2789 kg

DRUGS (7)
  1. XOPENEX [Suspect]
     Indication: CHRONIC OBSTRUCTIVE AIRWAYS DISEASE
     Dosage: 1.25 MG; Q6H; INHALATION
     Route: 055
     Dates: start: 20040727, end: 20040731
  2. LASIX [Concomitant]
  3. NPH INSULIN [Concomitant]
  4. XANAX [Concomitant]
  5. POTASSIUM CHLORIDE [Concomitant]
  6. ACCUPRIL [Concomitant]
  7. ZITHROMAX [Concomitant]

REACTIONS (1)
  - CHRONIC OBSTRUCTIVE AIRWAYS DISEASE EXACERBATED [None]
